FAERS Safety Report 20875724 (Version 1)
Quarter: 2022Q2

REPORT INFORMATION
  Report Type: Spontaneous
  Country: US (occurrence: US)
  Receive Date: 20220526
  Receipt Date: 20220526
  Transmission Date: 20220721
  Serious: No
  Sender: FDA-Public Use
  Company Number: US-ALKEM LABORATORIES LIMITED-US-ALKEM-2022-02204

PATIENT
  Sex: Male

DRUGS (1)
  1. IBUPROFEN AND FAMOTIDINE [Suspect]
     Active Substance: FAMOTIDINE\IBUPROFEN
     Indication: Pain
     Dosage: UNK
     Route: 048

REACTIONS (1)
  - Drug ineffective [Unknown]
